FAERS Safety Report 10219048 (Version 1)
Quarter: 2014Q2

REPORT INFORMATION
  Report Type: Spontaneous
  Country: US (occurrence: None)
  Receive Date: 20140604
  Receipt Date: 20140604
  Transmission Date: 20141212
  Serious: Yes (Life-Threatening, Hospitalization)
  Sender: FDA-Public Use
  Company Number: None

PATIENT
  Age: 70 Year
  Sex: Male
  Weight: 96.16 kg

DRUGS (2)
  1. ATIVAN [Suspect]
     Dosage: UNK THREE TIMES DAILY INTO A VEIN
     Route: 042
  2. KETAMINE [Suspect]
     Indication: SEDATION
     Route: 042

REACTIONS (2)
  - Psychotic disorder [None]
  - Loss of consciousness [None]
